FAERS Safety Report 23093053 (Version 1)
Quarter: 2023Q4

REPORT INFORMATION
  Report Type: Spontaneous
  Country: GB (occurrence: GB)
  Receive Date: 20231021
  Receipt Date: 20231021
  Transmission Date: 20240110
  Serious: Yes (Other)
  Sender: FDA-Public Use
  Company Number: None

PATIENT
  Sex: Female

DRUGS (1)
  1. MIRTAZAPINE [Suspect]
     Active Substance: MIRTAZAPINE
     Indication: Insomnia
     Dosage: UNIT DOSE: 15MG
     Route: 065

REACTIONS (5)
  - Myalgia [Recovering/Resolving]
  - Arthralgia [Recovering/Resolving]
  - Somnolence [Unknown]
  - Abnormal dreams [Unknown]
  - Dreamy state [Unknown]
